FAERS Safety Report 5426891-3 (Version None)
Quarter: 2007Q3

REPORT INFORMATION
  Report Type: 
  Country: None (occurrence: None)
  Receive Date: 20070827
  Receipt Date: 20070816
  Transmission Date: 20080115
  Serious: Yes (Hospitalization)
  Sender: FDA-Public Use
  Company Number: CH-BOEHRINGER INGELHEIM PHARMACEUTICALS, INC.-2007-DE-04862SI

PATIENT
  Age: 70 Year
  Sex: Male

DRUGS (3)
  1. PRADIF [Suspect]
     Indication: BENIGN PROSTATIC HYPERPLASIA
     Route: 048
     Dates: start: 20070717, end: 20070724
  2. SIRDALUD [Suspect]
     Route: 048
     Dates: start: 20070724, end: 20070724
  3. CANDESARTAN CILEXETIL [Suspect]
     Indication: ESSENTIAL HYPERTENSION
     Route: 048

REACTIONS (4)
  - BRADYCARDIA [None]
  - HYPOTENSION [None]
  - SINOATRIAL BLOCK [None]
  - SYNCOPE [None]
